FAERS Safety Report 5417799-8 (Version None)
Quarter: 2007Q3

REPORT INFORMATION
  Report Type: 
  Country: None (occurrence: None)
  Receive Date: 20070815
  Receipt Date: 20070809
  Transmission Date: 20080115
  Serious: Yes (Hospitalization)
  Sender: FDA-Public Use
  Company Number: 163-21880-07070284

PATIENT
  Age: 47 Year
  Sex: Female
  Weight: 70.3075 kg

DRUGS (1)
  1. REVLIMID [Suspect]
     Indication: MULTIPLE MYELOMA
     Dosage: 25 MG, 1 IN 1 D, ORAL
     Route: 048
     Dates: start: 20070620, end: 20070702

REACTIONS (4)
  - EYE SWELLING [None]
  - GENERALISED OEDEMA [None]
  - PYREXIA [None]
  - RASH [None]
